FAERS Safety Report 7352960-7 (Version None)
Quarter: 2011Q1

REPORT INFORMATION
  Report Type: 
  Country: None (occurrence: None)
  Receive Date: 20110315
  Receipt Date: 20110308
  Transmission Date: 20110831
  Serious: Yes (Hospitalization, Other)
  Sender: FDA-Public Use
  Company Number: CN-ROCHE-763503

PATIENT
  Weight: 54 kg

DRUGS (2)
  1. XELODA [Suspect]
     Indication: GASTRIC CANCER
     Dosage: USED FOR 3 COURSES
     Route: 048
     Dates: start: 20101205, end: 20110130
  2. ELOXATIN [Concomitant]
     Indication: GASTRIC CANCER
     Dosage: USED FOR 3 COURSES
     Route: 042
     Dates: start: 20101205

REACTIONS (5)
  - VIRAL INFECTION [None]
  - PIGMENTATION DISORDER [None]
  - ULCERATIVE KERATITIS [None]
  - PALMAR-PLANTAR ERYTHRODYSAESTHESIA SYNDROME [None]
  - CORNEAL LESION [None]
